FAERS Safety Report 8704882 (Version 2)
Quarter: 2012Q4

REPORT INFORMATION
  Report Type: Report from Study
  Country: BR (occurrence: BR)
  Receive Date: 20120803
  Receipt Date: 20121206
  Transmission Date: 20130627
  Serious: Yes (Life-Threatening, Other)
  Sender: FDA-Public Use
  Company Number: BR-ROCHE-1093796

PATIENT
  Sex: Female
  Weight: 58 kg

DRUGS (17)
  1. TOCILIZUMAB [Suspect]
     Indication: RHEUMATOID ARTHRITIS
     Route: 042
     Dates: start: 20120613
  2. TOCILIZUMAB [Suspect]
     Route: 042
     Dates: start: 20120710
  3. PREDNISONE [Concomitant]
     Route: 065
  4. ARAVA [Concomitant]
  5. NAPROSYN [Concomitant]
     Route: 065
  6. OMEPRAZOLE [Concomitant]
  7. CODEINE [Concomitant]
  8. CYMBALTA [Concomitant]
     Route: 065
  9. METHOTREXATE [Concomitant]
  10. ENBREL [Concomitant]
  11. HUMIRA [Concomitant]
  12. REMICADE [Concomitant]
  13. ORENCIA [Concomitant]
  14. PURAN T4 [Concomitant]
     Route: 065
  15. QUETIAPINA [Concomitant]
  16. DIPIRON [Concomitant]
  17. TRAMAL [Concomitant]

REACTIONS (10)
  - Drug ineffective [Unknown]
  - Thyroid neoplasm [Not Recovered/Not Resolved]
  - Psoriasis [Not Recovered/Not Resolved]
  - Laryngeal oedema [Recovered/Resolved]
  - Pulmonary embolism [Recovered/Resolved]
  - Cardio-respiratory arrest [Recovered/Resolved]
  - Lung disorder [Recovered/Resolved]
  - Asthma [Not Recovered/Not Resolved]
  - Swelling [Not Recovered/Not Resolved]
  - Pain [Not Recovered/Not Resolved]
